FAERS Safety Report 12236527 (Version 4)
Quarter: 2017Q1

REPORT INFORMATION
  Report Type: Report from Study
  Country: BR (occurrence: BR)
  Receive Date: 20160404
  Receipt Date: 20170227
  Transmission Date: 20170428
  Serious: Yes (Hospitalization, Other)
  Sender: FDA-Public Use
  Company Number: BR-ROCHE-1487741

PATIENT
  Age: 36 Year
  Sex: Male
  Weight: 131 kg

DRUGS (16)
  1. CARVEDILOL. [Concomitant]
     Active Substance: CARVEDILOL
     Indication: CARDIAC DISORDER
     Route: 065
  2. CARVEDILOL. [Concomitant]
     Active Substance: CARVEDILOL
     Route: 065
  3. FUROSEMIDE. [Concomitant]
     Active Substance: FUROSEMIDE
     Indication: HYPERTENSION
     Route: 065
  4. OMEPRAZOLE. [Concomitant]
     Active Substance: OMEPRAZOLE
  5. PREDNISOLONE. [Concomitant]
     Active Substance: PREDNISOLONE
  6. ADDERA [Concomitant]
     Active Substance: CHOLECALCIFEROL
     Route: 065
  7. OXCARBAZEPINE. [Concomitant]
     Active Substance: OXCARBAZEPINE
     Route: 065
  8. NAPRIX [Concomitant]
     Active Substance: RAMIPRIL
  9. OXCARBAZEPINE. [Concomitant]
     Active Substance: OXCARBAZEPINE
     Dosage: ANTICONVULSANT
     Route: 065
  10. CALCITRIOL. [Concomitant]
     Active Substance: CALCITRIOL
     Route: 065
  11. LOSARTAN. [Concomitant]
     Active Substance: LOSARTAN
     Dosage: KIDNEY PROTECTION AND BLOOD PRESSURE STABILIZER
     Route: 065
  12. MABTHERA [Suspect]
     Active Substance: RITUXIMAB
     Indication: RHEUMATOID ARTHRITIS
     Dosage: MOST RECENT DOSE ON 30/APR/2014?MOST RECENT DOSE ON 04/AUG/2015?MOST RECENT DOSE ON 24/JUL/2016
     Route: 042
     Dates: start: 20140411
  13. FUROSEMIDE. [Concomitant]
     Active Substance: FUROSEMIDE
     Route: 065
  14. LASIX [Concomitant]
     Active Substance: FUROSEMIDE
  15. LOSARTAN. [Concomitant]
     Active Substance: LOSARTAN
     Indication: HYPERTENSION
     Route: 065
  16. CHILDREN^S ASA [Concomitant]

REACTIONS (24)
  - Wound dehiscence [Unknown]
  - Renal necrosis [Unknown]
  - Hypertension [Unknown]
  - Hernia [Not Recovered/Not Resolved]
  - Influenza [Unknown]
  - Cholecystitis [Unknown]
  - Hypotonia [Not Recovered/Not Resolved]
  - Sneezing [Recovering/Resolving]
  - Immunodeficiency [Not Recovered/Not Resolved]
  - Malaise [Unknown]
  - Wound dehiscence [Unknown]
  - Renal impairment [Not Recovered/Not Resolved]
  - Hiatus hernia [Not Recovered/Not Resolved]
  - Rhinitis [Recovering/Resolving]
  - Fatigue [Unknown]
  - Nephritis [Unknown]
  - Influenza [Recovering/Resolving]
  - Cholelithiasis [Unknown]
  - Proteinuria [Unknown]
  - Blood creatinine increased [Not Recovered/Not Resolved]
  - Pain [Not Recovered/Not Resolved]
  - Immunodeficiency [Unknown]
  - Anaemia [Not Recovered/Not Resolved]
  - Influenza [Unknown]

NARRATIVE: CASE EVENT DATE: 20141019
